FAERS Safety Report 7372295-6 (Version None)
Quarter: 2011Q1

REPORT INFORMATION
  Report Type: 
  Country: None (occurrence: None)
  Receive Date: 20110324
  Receipt Date: 20110317
  Transmission Date: 20110831
  Serious: Yes (Congenital Anomaly)
  Sender: FDA-Public Use
  Company Number: B0513199A

PATIENT
  Sex: Female

DRUGS (8)
  1. ZOLOFT [Suspect]
     Indication: DEPRESSION
     Dosage: 100MG PER DAY
     Route: 064
     Dates: start: 20070710, end: 20080205
  2. SEROQUEL [Suspect]
     Indication: DEPRESSION
     Dosage: 700MG PER DAY
     Route: 064
     Dates: start: 20040101, end: 20070710
  3. EFFEXOR [Suspect]
     Indication: DEPRESSION
     Dosage: 300MG PER DAY
     Route: 064
     Dates: start: 20040101, end: 20070710
  4. CORDARONE [Concomitant]
     Dosage: 100MG PER DAY
     Route: 064
     Dates: start: 20080207
  5. BELLADONNA [Concomitant]
     Route: 064
  6. VITAMIN E [Concomitant]
     Route: 064
  7. SELO-ZOK [Suspect]
     Dosage: 50MG PER DAY
     Route: 064
     Dates: start: 20071023
  8. LAMICTAL [Suspect]
     Indication: DEPRESSION
     Dosage: 150MG PER DAY
     Route: 064
     Dates: start: 20040101, end: 20070710

REACTIONS (4)
  - CEREBRAL VENTRICLE DILATATION [None]
  - DRUG EXPOSURE DURING PREGNANCY [None]
  - HEAD CIRCUMFERENCE ABNORMAL [None]
  - GROWTH RETARDATION [None]
